FAERS Safety Report 10363543 (Version 1)
Quarter: 2014Q3

REPORT INFORMATION
  Report Type: Spontaneous
  Country: US (occurrence: US)
  Receive Date: 20140805
  Receipt Date: 20140805
  Transmission Date: 20150326
  Serious: Yes (Other)
  Sender: FDA-Public Use
  Company Number: CHPA2014US010112

PATIENT
  Age: 77 Year
  Sex: Male

DRUGS (3)
  1. DESENEX (MICONAZOLE NITRATE) [Suspect]
     Active Substance: MICONAZOLE NITRATE
     Indication: HYPERHIDROSIS
     Dosage: UNK, QD AS NEEDED
     Route: 061
     Dates: end: 20140730
  2. DESENEX (MICONAZOLE NITRATE) [Suspect]
     Active Substance: MICONAZOLE NITRATE
     Indication: OFF LABEL USE
  3. DESENEX (MICONAZOLE NITRATE) [Suspect]
     Active Substance: MICONAZOLE NITRATE
     Indication: INFECTION PROPHYLAXIS

REACTIONS (4)
  - Hypertension [Recovering/Resolving]
  - Hypoacusis [Not Recovered/Not Resolved]
  - Expired product administered [Unknown]
  - Off label use [None]
